FAERS Safety Report 5964893-9 (Version None)
Quarter: 2008Q4

REPORT INFORMATION
  Report Type: 
  Country: None (occurrence: None)
  Receive Date: 20081124
  Receipt Date: 20081124
  Transmission Date: 20090506
  Serious: Yes (Other)
  Sender: FDA-Public Use
  Company Number: None

PATIENT
  Age: 45 Year
  Sex: Female
  Weight: 97.0698 kg

DRUGS (1)
  1. DULCOLAX [Suspect]
     Indication: CONSTIPATION
     Dosage: 1 X ONCE RECTAL
     Dates: start: 20080630, end: 20080630

REACTIONS (2)
  - ANAL FISTULA [None]
  - VAGINAL FISTULA [None]
